FAERS Safety Report 5283190-0 (Version None)
Quarter: 2007Q2

REPORT INFORMATION
  Report Type: 
  Country: None (occurrence: None)
  Receive Date: 20070402
  Receipt Date: 20070327
  Transmission Date: 20071010
  Serious: Yes (Other)
  Sender: FDA-Public Use
  Company Number: US-GLAXOSMITHKLINE-A0645311A

PATIENT
  Age: 31 Year
  Sex: Female

DRUGS (3)
  1. LAMICTAL [Suspect]
     Indication: EPILEPSY
     Dates: start: 20051228, end: 20060405
  2. PRENATAL VITAMINS [Concomitant]
     Dates: start: 20051228, end: 20060405
  3. FOLATE [Concomitant]
     Dosage: 1MG PER DAY
     Dates: start: 20051228, end: 20060405

REACTIONS (3)
  - ABORTION SPONTANEOUS [None]
  - DRUG EXPOSURE DURING PREGNANCY [None]
  - PREGNANCY [None]
